FAERS Safety Report 11326818 (Version 1)
Quarter: 2015Q3

REPORT INFORMATION
  Report Type: Spontaneous
  Country: US (occurrence: None)
  Receive Date: 20150729
  Receipt Date: 20150729
  Transmission Date: 20151125
  Serious: Yes (Hospitalization)
  Sender: FDA-Public Use
  Company Number: None

PATIENT
  Age: 48 Year
  Sex: Female

DRUGS (12)
  1. TEMAZEPAM. [Concomitant]
     Active Substance: TEMAZEPAM
  2. OXYCODONE [Concomitant]
     Active Substance: OXYCODONE
  3. LORAZEPAM. [Concomitant]
     Active Substance: LORAZEPAM
  4. CALCIUM CARBONATE. [Concomitant]
     Active Substance: CALCIUM CARBONATE
  5. HEPARIN [Concomitant]
     Active Substance: HEPARIN SODIUM
  6. SIMVASTATIN. [Concomitant]
     Active Substance: SIMVASTATIN
  7. ONDANSETRON [Concomitant]
     Active Substance: ONDANSETRON
  8. SODIUM BICARBONATE. [Concomitant]
     Active Substance: SODIUM BICARBONATE
  9. LOSARTAN. [Concomitant]
     Active Substance: LOSARTAN
  10. POTASSIUM [Concomitant]
     Active Substance: POTASSIUM
  11. METHOTREXATE [Suspect]
     Active Substance: METHOTREXATE
     Indication: PROPHYLAXIS
     Route: 042
     Dates: start: 20150319
  12. ALLOPURINOL. [Concomitant]
     Active Substance: ALLOPURINOL

REACTIONS (2)
  - Renal impairment [None]
  - Toxicity to various agents [None]

NARRATIVE: CASE EVENT DATE: 20150320
